FAERS Safety Report 7699192-0 (Version None)
Quarter: 2011Q3

REPORT INFORMATION
  Report Type: 
  Country: None (occurrence: None)
  Receive Date: 20110819
  Receipt Date: 20110812
  Transmission Date: 20111222
  Serious: No
  Sender: FDA-Public Use
  Company Number: US-BAYER-2011-060738

PATIENT
  Age: 51 Year
  Sex: Female

DRUGS (4)
  1. BETASERON [Suspect]
     Indication: MULTIPLE SCLEROSIS
     Dosage: 8 MIU, QOD
     Route: 058
     Dates: start: 20110708
  2. COPAXONE [Concomitant]
     Dosage: UNK
     Dates: start: 20110501, end: 20110501
  3. BETASERON [Suspect]
     Dosage: 6 MIU, QOD
     Dates: start: 20110810
  4. IBUPROFEN [Concomitant]

REACTIONS (8)
  - PYREXIA [None]
  - JOINT STIFFNESS [None]
  - GAIT DISTURBANCE [None]
  - CHILLS [None]
  - AGITATION [None]
  - MUSCLE SPASMS [None]
  - NERVOUSNESS [None]
  - PAIN [None]
